FAERS Safety Report 13766684 (Version 1)
Quarter: 2017Q3

REPORT INFORMATION
  Report Type: Spontaneous
  Country: CA (occurrence: CA)
  Receive Date: 20170719
  Receipt Date: 20170719
  Transmission Date: 20171127
  Serious: Yes (Death, Hospitalization, Disabling)
  Sender: FDA-Public Use
  Company Number: CA-PFIZER INC-2679140

PATIENT
  Age: 77 Year
  Sex: Male

DRUGS (2)
  1. METHOTREXATE SODIUM. [Suspect]
     Active Substance: METHOTREXATE SODIUM
     Indication: PRODUCT USED FOR UNKNOWN INDICATION
     Dosage: NOT REPORTED
     Route: 048
  2. STIVARGA [Interacting]
     Active Substance: REGORAFENIB
     Indication: COLORECTAL CANCER METASTATIC
     Dosage: 80 MG, FREQ: 1 DAY; INTERVAL 1
     Route: 048

REACTIONS (11)
  - Colorectal cancer metastatic [Fatal]
  - Dizziness [Fatal]
  - Asthenia [Fatal]
  - Decreased appetite [Fatal]
  - Fall [Fatal]
  - Blood pressure increased [Fatal]
  - Labelled drug-drug interaction medication error [Fatal]
  - Neoplasm [Fatal]
  - Constipation [Fatal]
  - Aphonia [Fatal]
  - Pancreatic enzymes increased [Fatal]
